FAERS Safety Report 17240604 (Version 1)
Quarter: 2020Q1

REPORT INFORMATION
  Report Type: Spontaneous
  Country: US (occurrence: US)
  Receive Date: 20200107
  Receipt Date: 20200107
  Transmission Date: 20200409
  Serious: Yes (Death, Other)
  Sender: FDA-Public Use
  Company Number: US-EMCURE PHARMACEUTICALS LTD-2019-EPL-1256

PATIENT
  Age: 2 Month
  Sex: Female

DRUGS (5)
  1. NADOLOL. [Suspect]
     Active Substance: NADOLOL
     Dosage: 2.6 MILLIGRAM, BID (0.5 MG/KG PER DAY)
     Route: 065
     Dates: start: 20151025, end: 20151029
  2. NADOLOL. [Suspect]
     Active Substance: NADOLOL
     Dosage: 3.9 MILLIGRAM, BID (1 MG/KG PER DAY)
     Route: 065
     Dates: start: 20151029, end: 20151102
  3. NADOLOL. [Suspect]
     Active Substance: NADOLOL
     Dosage: 5.5 MILLIGRAM, BID
     Route: 065
     Dates: start: 20151123, end: 201511
  4. NADOLOL. [Suspect]
     Active Substance: NADOLOL
     Indication: INFANTILE HAEMANGIOMA
     Dosage: 1.3 MILLIGRAM, BID (0.25 MG/KG PER DAY)
     Route: 065
     Dates: start: 20151021, end: 20151025
  5. NADOLOL. [Suspect]
     Active Substance: NADOLOL
     Dosage: 2 MILLIGRAM, BID (2 MG/KG PER DAY)
     Route: 065
     Dates: start: 20151102, end: 20151102

REACTIONS (7)
  - Somnolence [Unknown]
  - Poor feeding infant [Unknown]
  - Off label use [Unknown]
  - Peripheral coldness [Unknown]
  - Constipation [Unknown]
  - Toxicity to various agents [Fatal]
  - Cyanosis [Unknown]

NARRATIVE: CASE EVENT DATE: 20151021
